FAERS Safety Report 18641061 (Version 1)
Quarter: 2020Q4

REPORT INFORMATION
  Report Type: Spontaneous
  Country: US (occurrence: US)
  Receive Date: 20201221
  Receipt Date: 20201221
  Transmission Date: 20210114
  Serious: Yes (Death, Other)
  Sender: FDA-Public Use
  Company Number: US-009507513-2012USA008694

PATIENT
  Age: 72 Year
  Sex: Male

DRUGS (2)
  1. TRAMADOL HYDROCHLORIDE. [Suspect]
     Active Substance: TRAMADOL HYDROCHLORIDE
     Dosage: ROUTE: INGESTION
  2. REMERON [Suspect]
     Active Substance: MIRTAZAPINE
     Dosage: ROUTE: INGESTION

REACTIONS (1)
  - Suspected suicide [Fatal]
